FAERS Safety Report 6554550-2 (Version None)
Quarter: 2010Q1

REPORT INFORMATION
  Report Type: 
  Country: None (occurrence: None)
  Receive Date: 20100127
  Receipt Date: 20100120
  Transmission Date: 20100710
  Serious: Yes (Disabling, Other)
  Sender: FDA-Public Use
  Company Number: PHEH2009US17576

PATIENT
  Sex: Male

DRUGS (6)
  1. EXJADE [Suspect]
     Dosage: 1000 MG, DAILY
     Route: 048
  2. MELOXICAM [Concomitant]
  3. WELLBUTRIN [Concomitant]
  4. OMEPRAZOLE [Concomitant]
  5. QUINAPRIL [Concomitant]
  6. METOPROLOL [Concomitant]

REACTIONS (1)
  - BLINDNESS [None]
